FAERS Safety Report 25335283 (Version 3)
Quarter: 2025Q3

REPORT INFORMATION
  Report Type: Report from Study
  Country: US (occurrence: US)
  Receive Date: 20250520
  Receipt Date: 20250803
  Transmission Date: 20251020
  Serious: No
  Sender: ALEXION PHARMACEUTICALS
  Company Number: US-AstraZeneca-CH-00838045A

PATIENT
  Sex: Female
  Weight: 102.49 kg

DRUGS (1)
  1. BUDESONIDE\FORMOTEROL\GLYCOPYRRONIUM [Suspect]
     Active Substance: BUDESONIDE\FORMOTEROL\GLYCOPYRRONIUM
     Indication: Product used for unknown indication

REACTIONS (10)
  - Chest discomfort [Recovered/Resolved]
  - Dyspnoea [Recovered/Resolved]
  - Dysstasia [Recovered/Resolved]
  - Drug ineffective [Unknown]
  - Sleep disorder [Unknown]
  - Muscle spasms [Recovered/Resolved]
  - Lung disorder [Unknown]
  - Mass [Unknown]
  - Candida infection [Unknown]
  - Chest discomfort [Unknown]
